FAERS Safety Report 12438320 (Version 1)
Quarter: 2016Q2

REPORT INFORMATION
  Report Type: Spontaneous
  Country: US (occurrence: US)
  Receive Date: 20160606
  Receipt Date: 20160606
  Transmission Date: 20160815
  Serious: Yes (Other)
  Sender: FDA-Public Use
  Company Number: US-GLAXOSMITHKLINE-US2016078707

PATIENT
  Sex: Female

DRUGS (1)
  1. ADVAIR DISKUS [Suspect]
     Active Substance: FLUTICASONE PROPIONATE\SALMETEROL XINAFOATE
     Indication: CHRONIC OBSTRUCTIVE PULMONARY DISEASE
     Dosage: 1 PUFF(S), QD
     Route: 055
     Dates: end: 20160530

REACTIONS (9)
  - Glaucoma [Unknown]
  - Oropharyngeal pain [Unknown]
  - Oral pain [Unknown]
  - Malaise [Unknown]
  - Blood pressure increased [Unknown]
  - Vision blurred [Unknown]
  - Urinary tract infection [Unknown]
  - Chest pain [Unknown]
  - Underdose [Unknown]
